FAERS Safety Report 19921292 (Version 1)
Quarter: 2021Q4

REPORT INFORMATION
  Report Type: Spontaneous
  Country: US (occurrence: US)
  Receive Date: 20211005
  Receipt Date: 20211005
  Transmission Date: 20220303
  Serious: No
  Sender: FDA-Public Use
  Company Number: US-ADAMAS PHARMA, LLC-2021ADA02057

PATIENT

DRUGS (2)
  1. GOCOVRI [Suspect]
     Active Substance: AMANTADINE
     Dosage: 68.5 MG, 1X/DAY AT BEDTIME
  2. CARBIDOPA\LEVODOPA [Concomitant]
     Active Substance: CARBIDOPA\LEVODOPA

REACTIONS (2)
  - Dizziness [Unknown]
  - Nausea [Unknown]
